FAERS Safety Report 6048043-9 (Version None)
Quarter: 2009Q1

REPORT INFORMATION
  Report Type: 
  Country: None (occurrence: None)
  Receive Date: 20090123
  Receipt Date: 20090112
  Transmission Date: 20090719
  Serious: Yes (Hospitalization)
  Sender: FDA-Public Use
  Company Number: US-PFIZER INC-2006097456

PATIENT
  Sex: Male
  Weight: 86.168 kg

DRUGS (1)
  1. SUNITINIB MALATE [Suspect]
     Indication: GASTROINTESTINAL STROMAL TUMOUR
     Dosage: 37.5 MG, 1X/DAY
     Route: 048
     Dates: start: 20060113

REACTIONS (3)
  - AMMONIA INCREASED [None]
  - HYPERKALAEMIA [None]
  - MENTAL STATUS CHANGES [None]
